FAERS Safety Report 24298605 (Version 1)
Quarter: 2024Q3

REPORT INFORMATION
  Report Type: Spontaneous
  Country: CN (occurrence: CN)
  Receive Date: 20240909
  Receipt Date: 20240909
  Transmission Date: 20241017
  Serious: Yes (Death, Other)
  Sender: AMGEN
  Company Number: CN-AMGEN-CHNSP2024177021

PATIENT

DRUGS (3)
  1. BLINATUMOMAB [Suspect]
     Active Substance: BLINATUMOMAB
     Indication: B-cell type acute leukaemia
     Dosage: 9 MICROGRAM, QD, D1 TO 3
     Route: 065
  2. BLINATUMOMAB [Suspect]
     Active Substance: BLINATUMOMAB
     Dosage: 28 MICROGRAM, QD, D4 TO 14
     Route: 065
  3. Busulfan;Cyclophosphamide [Concomitant]
     Indication: B-cell type acute leukaemia
     Dosage: UNK
     Route: 065

REACTIONS (25)
  - Death [Fatal]
  - Cystitis haemorrhagic [Unknown]
  - Acute graft versus host disease [Unknown]
  - Renal injury [Unknown]
  - Liver injury [Unknown]
  - Leukopenia [Unknown]
  - Neutropenia [Unknown]
  - Thrombocytopenia [Unknown]
  - Cytokine release syndrome [Unknown]
  - Hypokalaemia [Unknown]
  - Pneumonia [Unknown]
  - Epstein-Barr virus infection reactivation [Unknown]
  - Cytomegalovirus infection reactivation [Unknown]
  - Chronic graft versus host disease [Unknown]
  - Acute lymphocytic leukaemia recurrent [Unknown]
  - Lymphopenia [Unknown]
  - Haematological infection [Unknown]
  - Urinary tract infection [Unknown]
  - Skin bacterial infection [Unknown]
  - Gastrointestinal infection [Unknown]
  - Anaemia [Unknown]
  - Hypoalbuminaemia [Unknown]
  - Fatigue [Unknown]
  - BK virus infection [Unknown]
  - Activated partial thromboplastin time [Unknown]
